FAERS Safety Report 17142650 (Version 1)
Quarter: 2019Q4

REPORT INFORMATION
  Report Type: Spontaneous
  Country: HR (occurrence: HR)
  Receive Date: 20191211
  Receipt Date: 20191211
  Transmission Date: 20200122
  Serious: Yes (Death, Hospitalization)
  Sender: FDA-Public Use
  Company Number: HR-JNJFOC-20191041225

PATIENT
  Age: 4 Month
  Sex: Male

DRUGS (5)
  1. REMICADE [Suspect]
     Active Substance: INFLIXIMAB
     Indication: KAWASAKI^S DISEASE
     Route: 042
  2. HEPARIN [Concomitant]
     Active Substance: HEPARIN SODIUM
     Indication: PROPHYLAXIS
  3. CYCLOSPORINE. [Concomitant]
     Active Substance: CYCLOSPORINE
  4. ASPIRINE [Concomitant]
     Active Substance: ASPIRIN
     Indication: KAWASAKI^S DISEASE
  5. ALTEPLASE. [Concomitant]
     Active Substance: ALTEPLASE
     Indication: THROMBOSIS

REACTIONS (14)
  - Cardiac failure [Fatal]
  - Congestive cardiomyopathy [Fatal]
  - Respiratory arrest [Unknown]
  - Troponin increased [Unknown]
  - Off label use [Unknown]
  - Decreased appetite [Unknown]
  - Death [Fatal]
  - Bradycardia [Unknown]
  - Product use in unapproved indication [Unknown]
  - Product use issue [Unknown]
  - Thrombosis [Fatal]
  - Vomiting [Unknown]
  - Coronary artery aneurysm [Fatal]
  - Condition aggravated [Unknown]
